FAERS Safety Report 11507418 (Version 1)
Quarter: 2015Q3

REPORT INFORMATION
  Report Type: Spontaneous
  Country: US (occurrence: US)
  Receive Date: 20150915
  Receipt Date: 20150915
  Transmission Date: 20151125
  Serious: Yes (Other)
  Sender: FDA-Public Use
  Company Number: US-ASTRAZENECA-2015SE88294

PATIENT
  Sex: Female
  Weight: 74.4 kg

DRUGS (2)
  1. LISINOPRIL. [Suspect]
     Active Substance: LISINOPRIL
     Route: 048
  2. BYETTA [Suspect]
     Active Substance: EXENATIDE
     Indication: TYPE 2 DIABETES MELLITUS
     Dosage: 250 MCG/2.4 ML, 2.4 ML TWO TIMES A DAY
     Route: 058

REACTIONS (3)
  - Injection site extravasation [Unknown]
  - Pulmonary mass [Recovering/Resolving]
  - Weight increased [Unknown]
